FAERS Safety Report 17683475 (Version 2)
Quarter: 2020Q2

REPORT INFORMATION
  Report Type: Spontaneous
  Country: US (occurrence: US)
  Receive Date: 20200420
  Receipt Date: 20200626
  Transmission Date: 20200714
  Serious: No
  Sender: FDA-Public Use
  Company Number: US-BRISTOL-MYERS SQUIBB COMPANY-BMS-2020-032145

PATIENT
  Age: 64 Year
  Sex: Male
  Weight: 88.72 kg

DRUGS (2)
  1. OPDIVO [Suspect]
     Active Substance: NIVOLUMAB
     Indication: RENAL CELL CARCINOMA
     Dosage: 280 MG,EVERY 21 DAYS.
     Route: 042
     Dates: start: 20200416
  2. YERVOY [Suspect]
     Active Substance: IPILIMUMAB
     Indication: PRODUCT USED FOR UNKNOWN INDICATION
     Dosage: 90 MG IN 50 ML,EVERY 21 DAYS
     Route: 042

REACTIONS (2)
  - Nausea [Unknown]
  - Back pain [Unknown]
